FAERS Safety Report 8960123 (Version 1)
Quarter: 2012Q4

REPORT INFORMATION
  Report Type: 
  Country: JP (occurrence: JP)
  Receive Date: 20121211
  Receipt Date: 20121211
  Transmission Date: 20130627
  Serious: Yes (Other)
  Sender: FDA-Public Use
  Company Number: JP-GLAXOSMITHKLINE-B0850608A

PATIENT
  Age: 81 Year
  Sex: Male

DRUGS (10)
  1. AVOLVE [Suspect]
     Indication: PRODUCT USED FOR UNKNOWN INDICATION
     Route: 048
     Dates: start: 2012, end: 20121122
  2. REQUIP [Concomitant]
     Route: 048
  3. TRERIEF [Concomitant]
     Route: 048
  4. FP [Concomitant]
     Route: 048
  5. GASMOTIN [Concomitant]
     Route: 048
  6. SYMMETREL [Concomitant]
     Route: 048
  7. MENESIT [Concomitant]
     Route: 048
  8. PERMAX [Concomitant]
     Route: 048
  9. MAGMITT [Concomitant]
     Route: 048
  10. CABASER [Concomitant]
     Route: 048

REACTIONS (1)
  - Parkinson^s disease [Unknown]
